FAERS Safety Report 7791780-6 (Version None)
Quarter: 2011Q4

REPORT INFORMATION
  Report Type: 
  Country: None (occurrence: None)
  Receive Date: 20111003
  Receipt Date: 20110928
  Transmission Date: 20120403
  Serious: Yes (Other)
  Sender: FDA-Public Use
  Company Number: US-PFIZER INC-2011226194

PATIENT
  Sex: Female
  Weight: 65.76 kg

DRUGS (6)
  1. AMITRIPTYLINE [Concomitant]
     Indication: ANXIETY
     Dosage: 100 MG, 1X/DAY
  2. XANAX [Concomitant]
     Indication: SLEEP DISORDER
     Dosage: 1 MG, 1X/DAY
  3. AMITRIPTYLINE [Concomitant]
     Indication: DEPRESSION
  4. CHANTIX [Suspect]
     Indication: SMOKING CESSATION THERAPY
     Dosage: 0.5 MG, 1X/DAY
     Route: 048
     Dates: start: 20110910, end: 20110901
  5. CHANTIX [Suspect]
     Dosage: 1 MG, 2X/DAY
     Route: 048
     Dates: start: 20110901, end: 20110922
  6. IBUPROFEN [Concomitant]
     Indication: PAIN
     Dosage: UNK

REACTIONS (6)
  - HALLUCINATION [None]
  - ANGER [None]
  - FRUSTRATION [None]
  - SUICIDAL IDEATION [None]
  - IRRITABILITY [None]
  - AGITATION [None]
